FAERS Safety Report 10948132 (Version 2)
Quarter: 2015Q3

REPORT INFORMATION
  Report Type: Spontaneous
  Country: FR (occurrence: FR)
  Receive Date: 20150324
  Receipt Date: 20150810
  Transmission Date: 20151125
  Serious: Yes (Hospitalization)
  Sender: FDA-Public Use
  Company Number: FR-GLAXOSMITHKLINE-FR2015GSK029985

PATIENT
  Age: 23 Year
  Sex: Female

DRUGS (6)
  1. TRENTADIL [Suspect]
     Active Substance: BAMIFYLLINE
     Indication: COUGH
     Dosage: UNK
     Route: 048
     Dates: start: 20150206, end: 201502
  2. JASMINE [Concomitant]
     Active Substance: DROSPIRENONE\ETHINYL ESTRADIOL
  3. PREDNISOLONE. [Concomitant]
     Active Substance: PREDNISOLONE
     Indication: COUGH
     Dosage: UNK
     Dates: start: 20150206
  4. VENTOLINE [Suspect]
     Active Substance: ALBUTEROL
     Indication: COUGH
     Dosage: UNK
     Dates: start: 20150206, end: 201502
  5. DESLORATADINE. [Suspect]
     Active Substance: DESLORATADINE
     Indication: COUGH
     Dosage: UNK
     Route: 048
     Dates: start: 20150206, end: 201502
  6. FLUIMUCIL [Suspect]
     Active Substance: ACETYLCYSTEINE
     Indication: PRODUCT USED FOR UNKNOWN INDICATION
     Dosage: UNK
     Route: 048
     Dates: start: 20150206, end: 201502

REACTIONS (1)
  - Vascular purpura [Recovered/Resolved]

NARRATIVE: CASE EVENT DATE: 20150214
